FAERS Safety Report 5584787-0 (Version None)
Quarter: 2008Q1

REPORT INFORMATION
  Report Type: 
  Country: None (occurrence: None)
  Receive Date: 20080103
  Receipt Date: 20071220
  Transmission Date: 20080703
  Serious: Yes (Hospitalization)
  Sender: FDA-Public Use
  Company Number: DSJ-2007-10608

PATIENT
  Age: 46 Year
  Sex: Female
  Weight: 63 kg

DRUGS (5)
  1. OLMESARTAN MEDOXOMIL [Suspect]
     Indication: ESSENTIAL HYPERTENSION
     Dosage: 20 MG (1 IN 1 D), PER ORAL
     Route: 048
     Dates: start: 20071110, end: 20071110
  2. LOXONIN (LOXOPROFEN SODIUM) (LOXOPROFEN SODIUM) [Concomitant]
  3. PA (CAFFEINE, SALICYLAMIDE, PARACETAMOL, PROMETHAZINE METHYLENE DISALI [Concomitant]
  4. ASTOMIN (DIMEMORFAN PHOSPHATE) (DIMEMORFAN PHOSPHATE) [Concomitant]
  5. DIOVANE (VALSARTAN) (TABLET) (VALSARTAN) [Concomitant]

REACTIONS (3)
  - ANAPHYLACTIC SHOCK [None]
  - DEFAECATION URGENCY [None]
  - LOSS OF CONSCIOUSNESS [None]
